FAERS Safety Report 17057939 (Version 1)
Quarter: 2019Q4

REPORT INFORMATION
  Report Type: Spontaneous
  Country: CA (occurrence: CA)
  Receive Date: 20191121
  Receipt Date: 20191121
  Transmission Date: 20200122
  Serious: Yes (Other)
  Sender: FDA-Public Use
  Company Number: CA-PFIZER INC-2019498468

PATIENT
  Age: 56 Year
  Weight: 57 kg

DRUGS (4)
  1. DIPHENHYDRAMINE. [Concomitant]
     Active Substance: DIPHENHYDRAMINE
     Dosage: UNK
  2. PACLITAXEL. [Suspect]
     Active Substance: PACLITAXEL
     Indication: HEAD AND NECK CANCER
     Dosage: 124 MG, WEEKLY
     Route: 042
  3. DEXAMETHASONE. [Concomitant]
     Active Substance: DEXAMETHASONE
     Dosage: UNK
  4. FAMOTIDINE. [Concomitant]
     Active Substance: FAMOTIDINE
     Dosage: UNK

REACTIONS (8)
  - Abdominal pain upper [Unknown]
  - Dyspnoea [Unknown]
  - Myalgia [Unknown]
  - Off label use [Unknown]
  - Erythema [Unknown]
  - Infusion related reaction [Unknown]
  - Product quality issue [Unknown]
  - Product use in unapproved indication [Unknown]
